FAERS Safety Report 4784481-X (Version None)
Quarter: 2005Q3

REPORT INFORMATION
  Report Type: 
  Country: None (occurrence: None)
  Receive Date: 20050930
  Receipt Date: 20050920
  Transmission Date: 20060218
  Serious: Yes (Hospitalization)
  Sender: FDA-Public Use
  Company Number: 2005CG01553

PATIENT
  Age: 70 Year
  Sex: Male

DRUGS (5)
  1. EMLA [Suspect]
     Route: 061
     Dates: start: 20050811, end: 20050819
  2. GEMZAR [Suspect]
     Indication: LUNG NEOPLASM MALIGNANT
     Route: 042
     Dates: start: 20050811, end: 20050819
  3. OMEPRAZOLE [Concomitant]
     Route: 048
  4. ALIMTA [Concomitant]
     Indication: LUNG NEOPLASM MALIGNANT
     Dates: start: 20050520, end: 20050722
  5. CISPLATIN [Concomitant]
     Indication: LUNG NEOPLASM MALIGNANT
     Dates: start: 20050520, end: 20050722

REACTIONS (3)
  - DYSPNOEA [None]
  - PYREXIA [None]
  - URTICARIA [None]
